FAERS Safety Report 11729858 (Version 1)
Quarter: 2015Q4

REPORT INFORMATION
  Report Type: Spontaneous
  Country: US (occurrence: US)
  Receive Date: 20151110
  Receipt Date: 20151110
  Transmission Date: 20160304
  Serious: No
  Sender: FDA-Public Use
  Company Number: US-ELI_LILLY_AND_COMPANY-US201111002874

PATIENT
  Age: 65 Year
  Sex: Female

DRUGS (2)
  1. FORTEO [Suspect]
     Active Substance: TERIPARATIDE
     Dosage: 20 UG, QD
     Route: 065
     Dates: end: 20111227
  2. FORTEO [Suspect]
     Active Substance: TERIPARATIDE
     Indication: OSTEOPOROSIS
     Dosage: 20 UG, QD
     Route: 065
     Dates: start: 20111015

REACTIONS (13)
  - Photopsia [Unknown]
  - Injection site pain [Not Recovered/Not Resolved]
  - Blepharitis [Not Recovered/Not Resolved]
  - Eye swelling [Unknown]
  - Injection site erythema [Unknown]
  - Eye contusion [Unknown]
  - Malaise [Unknown]
  - Heart rate increased [Unknown]
  - Skin wrinkling [Unknown]
  - Erythema [Not Recovered/Not Resolved]
  - Feeling cold [Unknown]
  - Injection site swelling [Unknown]
  - Erythema of eyelid [Unknown]

NARRATIVE: CASE EVENT DATE: 20111015
